FAERS Safety Report 13533533 (Version 2)
Quarter: 2017Q2

REPORT INFORMATION
  Report Type: Report from Study
  Country: US (occurrence: US)
  Receive Date: 20170510
  Receipt Date: 20170612
  Transmission Date: 20170830
  Serious: Yes (Hospitalization)
  Sender: FDA-Public Use
  Company Number: US-EISAI MEDICAL RESEARCH-EC-2017-025565

PATIENT
  Sex: Male
  Weight: 84 kg

DRUGS (18)
  1. ISOSORBIDE. [Concomitant]
     Active Substance: ISOSORBIDE
  2. LENVIMA [Suspect]
     Active Substance: LENVATINIB
     Indication: RENAL CELL CARCINOMA
     Route: 048
     Dates: start: 20170223, end: 2017
  3. FUROSEMIDE. [Concomitant]
     Active Substance: FUROSEMIDE
  4. HUMALOG [Concomitant]
     Active Substance: INSULIN LISPRO
  5. METOPROLOL. [Concomitant]
     Active Substance: METOPROLOL
  6. ATORVASTATIN [Concomitant]
     Active Substance: ATORVASTATIN
  7. AFINITOR [Concomitant]
     Active Substance: EVEROLIMUS
  8. PAROXETINE. [Concomitant]
     Active Substance: PAROXETINE
  9. HYDROCODONE CHLORPHEN [Concomitant]
     Active Substance: CHLORPHENIRAMINE\HYDROCODONE
  10. AMIODARONE [Concomitant]
     Active Substance: AMIODARONE
  11. TUSSIONEX PENNKINETIC [Concomitant]
     Active Substance: CHLORPHENIRAMINE\HYDROCODONE
  12. POTASSIUM [Concomitant]
     Active Substance: POTASSIUM
  13. LANTUS [Concomitant]
     Active Substance: INSULIN GLARGINE
  14. CARVEDILOL. [Concomitant]
     Active Substance: CARVEDILOL
  15. DOXYCYCLINE. [Concomitant]
     Active Substance: DOXYCYCLINE
  16. CEFUROXIME. [Concomitant]
     Active Substance: CEFUROXIME
  17. ENTRESTO [Concomitant]
     Active Substance: SACUBITRIL\VALSARTAN
  18. DEXAMETHASONE. [Concomitant]
     Active Substance: DEXAMETHASONE

REACTIONS (3)
  - Cough [Not Recovered/Not Resolved]
  - Blood pressure increased [Not Recovered/Not Resolved]
  - Cardiac failure congestive [Unknown]

NARRATIVE: CASE EVENT DATE: 2017
